FAERS Safety Report 4309463-3 (Version None)
Quarter: 2004Q1

REPORT INFORMATION
  Report Type: 
  Country: None (occurrence: None)
  Receive Date: 20040301
  Receipt Date: 20021210
  Transmission Date: 20041129
  Serious: Yes (Hospitalization)
  Sender: FDA-Public Use
  Company Number: 2002IC000341

PATIENT
  Age: 57 Year
  Sex: Female

DRUGS (26)
  1. FLUOROURACIL [Suspect]
     Indication: METASTASES TO LIVER
     Dosage: SEE IMAGE
     Route: 042
     Dates: start: 20010830, end: 20011121
  2. FLUOROURACIL [Suspect]
     Indication: RECTAL CANCER
     Dosage: SEE IMAGE
     Route: 042
     Dates: start: 20010830, end: 20011121
  3. FLUOROURACIL [Suspect]
     Indication: METASTASES TO LIVER
     Dosage: SEE IMAGE
     Route: 042
     Dates: start: 20010830, end: 20011121
  4. FLUOROURACIL [Suspect]
     Indication: RECTAL CANCER
     Dosage: SEE IMAGE
     Route: 042
     Dates: start: 20010830, end: 20011121
  5. FLUOROURACIL [Suspect]
     Indication: METASTASES TO LIVER
     Dosage: SEE IMAGE
     Route: 042
     Dates: start: 20011212, end: 20011219
  6. FLUOROURACIL [Suspect]
     Indication: RECTAL CANCER
     Dosage: SEE IMAGE
     Route: 042
     Dates: start: 20011212, end: 20011219
  7. FLUOROURACIL [Suspect]
     Indication: METASTASES TO LIVER
     Dosage: SEE IMAGE
     Route: 042
     Dates: start: 20011212, end: 20011219
  8. FLUOROURACIL [Suspect]
     Indication: RECTAL CANCER
     Dosage: SEE IMAGE
     Route: 042
     Dates: start: 20011212, end: 20011219
  9. ISOVORIN [Suspect]
     Indication: METASTASES TO LIVER
     Dosage: SEE IMAGE
     Route: 042
     Dates: start: 20010830, end: 20011121
  10. ISOVORIN [Suspect]
     Indication: RECTAL CANCER
     Dosage: SEE IMAGE
     Route: 042
     Dates: start: 20010830, end: 20011121
  11. ISOVORIN [Suspect]
     Indication: METASTASES TO LIVER
     Dosage: SEE IMAGE
     Route: 042
     Dates: start: 20010830, end: 20011121
  12. ISOVORIN [Suspect]
     Indication: RECTAL CANCER
     Dosage: SEE IMAGE
     Route: 042
     Dates: start: 20010830, end: 20011121
  13. ISOVORIN [Suspect]
     Indication: METASTASES TO LIVER
     Dosage: SEE IMAGE
     Route: 042
     Dates: start: 20011212, end: 20011219
  14. ISOVORIN [Suspect]
     Indication: RECTAL CANCER
     Dosage: SEE IMAGE
     Route: 042
     Dates: start: 20011212, end: 20011219
  15. ISOVORIN [Suspect]
     Indication: METASTASES TO LIVER
     Dosage: SEE IMAGE
     Route: 042
     Dates: start: 20011212, end: 20011219
  16. ISOVORIN [Suspect]
     Indication: RECTAL CANCER
     Dosage: SEE IMAGE
     Route: 042
     Dates: start: 20011212, end: 20011219
  17. TAGAMET [Concomitant]
  18. JU-KAMA [Concomitant]
  19. LAC B [Concomitant]
  20. SILECE [Concomitant]
  21. CRAVIT [Concomitant]
  22. ENTERONON-R (ANTIBIOTICS-RESISTANT LACTIC ACID BACTERIAE) [Concomitant]
  23. NAUZELIN [Concomitant]
  24. VOLTAREN [Concomitant]
  25. GASCON [Concomitant]
  26. VOLTAREN [Concomitant]

REACTIONS (3)
  - PANCREATITIS ACUTE [None]
  - PANCREATOLITHIASIS [None]
  - PYREXIA [None]
